FAERS Safety Report 11233649 (Version 1)
Quarter: 2015Q2

REPORT INFORMATION
  Report Type: Spontaneous
  Country: US (occurrence: None)
  Receive Date: 20150630
  Receipt Date: 20150630
  Transmission Date: 20150821
  Serious: Yes (Death)
  Sender: FDA-Public Use
  Company Number: DEP_03083_2015

PATIENT
  Age: 56 Year
  Sex: Female

DRUGS (15)
  1. QUETIAPINE [Concomitant]
     Active Substance: QUETIAPINE
  2. METHADONE [Suspect]
     Active Substance: METHADONE HYDROCHLORIDE
     Indication: PRODUCT USED FOR UNKNOWN INDICATION
     Dosage: DF
  3. HYDROXYZINE [Concomitant]
     Active Substance: HYDROXYZINE\HYDROXYZINE HYDROCHLORIDE
  4. TOPIRAMATE. [Concomitant]
     Active Substance: TOPIRAMATE
  5. ATROPINE [Concomitant]
     Active Substance: ATROPINE
  6. TRAZODONE [Concomitant]
     Active Substance: TRAZODONE HYDROCHLORIDE
  7. CANNABINOIDS [Concomitant]
     Active Substance: CANNABIS SATIVA SUBSP. SATIVA FLOWERING TOP
  8. METHAMPHETAMINE (NOT SPECIFIED) [Suspect]
     Active Substance: METHAMPHETAMINE
     Indication: PRODUCT USED FOR UNKNOWN INDICATION
     Dosage: DF
  9. AMPHETAMINE [Concomitant]
     Active Substance: AMPHETAMINE
  10. BENZOYLECGONINE [Concomitant]
     Active Substance: BENZOYLECGONINE
  11. COCAINE [Suspect]
     Active Substance: COCAINE
     Indication: PRODUCT USED FOR UNKNOWN INDICATION
     Dosage: DF
  12. METOCLOPRAMIDE. [Concomitant]
     Active Substance: METOCLOPRAMIDE
  13. GABAPENTIN. [Suspect]
     Active Substance: GABAPENTIN
     Indication: PRODUCT USED FOR UNKNOWN INDICATION
     Dosage: DF
  14. LAMOTRIGINE. [Concomitant]
     Active Substance: LAMOTRIGINE
  15. OLANZAPINE. [Concomitant]
     Active Substance: OLANZAPINE

REACTIONS (12)
  - Hepatic steatosis [None]
  - Cardiac arrest [None]
  - Rib fracture [None]
  - Organising pneumonia [None]
  - Head injury [None]
  - Refusal of treatment by patient [None]
  - Emphysema [None]
  - Post procedural complication [None]
  - Sternal fracture [None]
  - Accidental death [None]
  - Pleural effusion [None]
  - Fall [None]
